FAERS Safety Report 7274277-1 (Version None)
Quarter: 2011Q1

REPORT INFORMATION
  Report Type: 
  Country: None (occurrence: None)
  Receive Date: 20110204
  Receipt Date: 20110121
  Transmission Date: 20110831
  Serious: Yes (Hospitalization)
  Sender: FDA-Public Use
  Company Number: IN-RANBAXY-2010US-31131

PATIENT

DRUGS (4)
  1. ZIDOVUDINE [Suspect]
     Indication: ANTIRETROVIRAL THERAPY
     Dosage: UNK, UNK
     Route: 064
  2. ZIDOVUDINE [Suspect]
     Dosage: 2 MG/KG/DOSE SYRUP EVERY 6 HOURS FOR 6 WEEKS
     Route: 065
  3. NEVIRAPINE [Suspect]
     Indication: ANTIRETROVIRAL THERAPY
     Route: 064
  4. LAMIVUDINE [Suspect]
     Indication: ANTIRETROVIRAL THERAPY
     Route: 064

REACTIONS (7)
  - RENAL FAILURE ACUTE [None]
  - LACTIC ACIDOSIS [None]
  - PYREXIA [None]
  - DYSPNOEA [None]
  - HEPATOMEGALY [None]
  - DRUG EXPOSURE DURING PREGNANCY [None]
  - COUGH [None]
